FAERS Safety Report 11354157 (Version 1)
Quarter: 2015Q3

REPORT INFORMATION
  Report Type: Spontaneous
  Country: US (occurrence: US)
  Receive Date: 20150807
  Receipt Date: 20150807
  Transmission Date: 20151125
  Serious: No
  Sender: FDA-Public Use
  Company Number: US-JNJFOC-20150319343

PATIENT
  Age: 31 Year
  Sex: Female
  Weight: 58.51 kg

DRUGS (2)
  1. SUDAFED 24 HOUR [Suspect]
     Active Substance: PSEUDOEPHEDRINE HYDROCHLORIDE
     Indication: SINUS CONGESTION
     Dosage: 240MG EVERY 24 HOURS
     Route: 048
     Dates: start: 201504, end: 201504
  2. SUDAFED 24 HOUR [Suspect]
     Active Substance: PSEUDOEPHEDRINE HYDROCHLORIDE
     Route: 048

REACTIONS (3)
  - Product quality issue [Unknown]
  - Medication residue present [Unknown]
  - Drug ineffective [Unknown]
